FAERS Safety Report 8920403 (Version 2)
Quarter: 2013Q1

REPORT INFORMATION
  Report Type: Report from Study
  Country: JP (occurrence: JP)
  Receive Date: 20121121
  Receipt Date: 20130104
  Transmission Date: 20140127
  Serious: Yes (Hospitalization)
  Sender: FDA-Public Use
  Company Number: JP-JNJFOC-20121109598

PATIENT
  Age: 64 Year
  Sex: Male
  Weight: 65 kg

DRUGS (13)
  1. SIMPONI [Suspect]
     Indication: RHEUMATOID ARTHRITIS
     Route: 058
     Dates: start: 20120601
  2. SIMPONI [Suspect]
     Indication: RHEUMATOID ARTHRITIS
     Route: 058
     Dates: start: 20120502
  3. SIMPONI [Suspect]
     Indication: RHEUMATOID ARTHRITIS
     Route: 058
     Dates: start: 20120405
  4. SIMPONI [Suspect]
     Indication: RHEUMATOID ARTHRITIS
     Route: 058
     Dates: end: 20120824
  5. SIMPONI [Suspect]
     Indication: RHEUMATOID ARTHRITIS
     Route: 058
     Dates: start: 20120707, end: 20120718
  6. METHOTREXATE [Concomitant]
     Indication: RHEUMATOID ARTHRITIS
     Dates: start: 20120727
  7. LEFLUNOMIDE [Concomitant]
     Indication: RHEUMATOID ARTHRITIS
     Route: 048
     Dates: end: 20120726
  8. PREDNISOLONE [Concomitant]
     Indication: RHEUMATOID ARTHRITIS
     Route: 048
  9. HYPEN [Concomitant]
     Indication: RHEUMATOID ARTHRITIS
     Route: 048
  10. ISCOTIN [Concomitant]
     Indication: PROPHYLAXIS
     Route: 048
  11. OLMETEC [Concomitant]
     Indication: HYPERTENSION
     Route: 048
  12. TAKEPRON [Concomitant]
     Indication: GASTROOESOPHAGEAL REFLUX DISEASE
     Route: 048
  13. PROTECADIN [Concomitant]
     Indication: HYPERTENSION
     Route: 048

REACTIONS (3)
  - Urinary tract infection [Recovered/Resolved]
  - Pneumonia bacterial [Recovering/Resolving]
  - Drug ineffective [Unknown]
